FAERS Safety Report 14730486 (Version 1)
Quarter: 2018Q2

REPORT INFORMATION
  Report Type: Spontaneous
  Country: GB (occurrence: GB)
  Receive Date: 20180406
  Receipt Date: 20180406
  Transmission Date: 20180711
  Serious: Yes (Other)
  Sender: FDA-Public Use
  Company Number: PHHY2018GB059514

PATIENT
  Age: 26 Year
  Sex: Female
  Weight: 55 kg

DRUGS (1)
  1. COCODAMOL [Suspect]
     Active Substance: ACETAMINOPHEN\CODEINE PHOSPHATE
     Indication: ABDOMINAL PAIN
     Dosage: 30/500 OT, UNK
     Route: 048
     Dates: start: 20180126, end: 20180126

REACTIONS (1)
  - Pruritus [Recovered/Resolved]
